FAERS Safety Report 26149841 (Version 2)
Quarter: 2025Q4

REPORT INFORMATION
  Report Type: Spontaneous
  Country: US (occurrence: US)
  Receive Date: 20251212
  Receipt Date: 20251221
  Transmission Date: 20260117
  Serious: Yes (Hospitalization, Other)
  Sender: GLENMARK
  Company Number: US-GLENMARK PHARMACEUTICALS-2025GMK106432

PATIENT
  Age: 58 Year
  Sex: Male

DRUGS (4)
  1. LAMOTRIGINE [Suspect]
     Active Substance: LAMOTRIGINE
     Indication: Product used for unknown indication
     Dosage: 400 MILLIGRAM, QD
     Route: 065
  2. METOPROLOL [Concomitant]
     Active Substance: METOPROLOL
     Indication: Product used for unknown indication
     Dosage: 50 MILLIGRAM, QD
     Route: 065
  3. RITALIN [Concomitant]
     Active Substance: METHYLPHENIDATE HYDROCHLORIDE
     Indication: Product used for unknown indication
     Dosage: 20 MILLIGRAM, QD
     Route: 065
  4. THIAMINE [Concomitant]
     Active Substance: THIAMINE
     Indication: Alcohol abuse
     Dosage: UNK. (HIGH DOSE)
     Route: 065

REACTIONS (10)
  - Toxicity to various agents [Recovered/Resolved]
  - Dysmetria [Recovered/Resolved]
  - Blood pressure systolic increased [Recovering/Resolving]
  - Vomiting [Recovering/Resolving]
  - Vision blurred [Recovering/Resolving]
  - Dizziness [Recovering/Resolving]
  - Ataxia [Recovered/Resolved]
  - Dysarthria [Recovered/Resolved]
  - Diplopia [Recovering/Resolving]
  - Nausea [Recovering/Resolving]
